FAERS Safety Report 7514792-6 (Version None)
Quarter: 2011Q2

REPORT INFORMATION
  Report Type: 
  Country: None (occurrence: None)
  Receive Date: 20110520
  Receipt Date: 20110509
  Transmission Date: 20111010
  Serious: Yes (Hospitalization, Other)
  Sender: FDA-Public Use
  Company Number: ACO_24139_2011

PATIENT
  Age: 59 Year
  Sex: Female

DRUGS (15)
  1. WELLBUTRIN [Suspect]
     Indication: PRODUCT USED FOR UNKNOWN INDICATION
     Dates: end: 20110414
  2. CALCIUM (CALCIUM) [Concomitant]
  3. PROBIOTIC (BIFIDOBACTERIUM LACTIS) [Concomitant]
  4. AMPYRA [Suspect]
     Indication: PRODUCT USED FOR UNKNOWN INDICATION
     Dosage: 10 MG, QD, ORAL 10 MG, BID, ORAL
     Route: 048
     Dates: start: 20110301, end: 20110414
  5. AMPYRA [Suspect]
     Indication: PRODUCT USED FOR UNKNOWN INDICATION
     Dosage: 10 MG, QD, ORAL 10 MG, BID, ORAL
     Route: 048
     Dates: start: 20110201, end: 20110301
  6. AMPYRA [Suspect]
  7. FLOMAX /00889901/ (MORNIFLUMATE) [Concomitant]
  8. FIBER (POLYCARBOPHIL CALCIUM) [Concomitant]
  9. GABAPENTIN [Concomitant]
  10. INSULIN (INSULIN) [Concomitant]
  11. MULTIVITAMIN /00097801/(ASCORBIC ACID,CALCIUM PANTOTHENATE,ERGOCALCIFE [Concomitant]
  12. BACLOFEN [Concomitant]
  13. MIRALAX  /00754501/ (MACROGOL) [Concomitant]
  14. TRAZODONE HCL [Concomitant]
  15. COPAXONE [Concomitant]

REACTIONS (9)
  - CONVULSION [None]
  - HYPOGLYCAEMIA [None]
  - BLOOD GLUCOSE FLUCTUATION [None]
  - SPEECH DISORDER [None]
  - DISORIENTATION [None]
  - INAPPROPRIATE AFFECT [None]
  - INAPPROPRIATE SCHEDULE OF DRUG ADMINISTRATION [None]
  - AMNESIA [None]
  - MULTIPLE SCLEROSIS RELAPSE [None]
